FAERS Safety Report 7125521-2 (Version None)
Quarter: 2010Q4

REPORT INFORMATION
  Report Type: 
  Country: None (occurrence: None)
  Receive Date: 20101129
  Receipt Date: 20101123
  Transmission Date: 20110411
  Serious: Yes (Hospitalization)
  Sender: FDA-Public Use
  Company Number: DE-ROCHE-740831

PATIENT
  Sex: Female
  Weight: 77 kg

DRUGS (9)
  1. BEVACIZUMAB [Suspect]
     Indication: BREAST CANCER
     Dosage: ON DAY 1; LAST DOSE PRIOR TO THE EVENT WAS ON 19 OCT 2010
     Route: 042
     Dates: start: 20100505
  2. CAPECITABINE [Suspect]
     Indication: BREAST CANCER
     Dosage: ON DAY 1-14; LAST DOSE PRIOR TO THE EVENT WAS ON 2 NOV 2010
     Route: 048
     Dates: start: 20100506
  3. MARCUMAR [Concomitant]
     Dosage: FREQUENCY: PRN
     Dates: start: 19990101
  4. NOVODIGAL [Concomitant]
     Dates: start: 20040101
  5. SIMVASTATIN [Concomitant]
     Dates: start: 20040101
  6. METFORMIN [Concomitant]
     Dates: start: 20040101
  7. GLIMEPIRID [Concomitant]
     Dates: start: 20080101
  8. RAMIPRIL [Concomitant]
     Dates: start: 19990101
  9. METOPROLOL HCT [Concomitant]
     Dates: start: 19990101

REACTIONS (1)
  - CONFUSIONAL STATE [None]
